FAERS Safety Report 9440502 (Version 2)
Quarter: 2013Q3

REPORT INFORMATION
  Report Type: Spontaneous
  Country: US (occurrence: US)
  Receive Date: 20130805
  Receipt Date: 20130815
  Transmission Date: 20140515
  Serious: No
  Sender: FDA-Public Use
  Company Number: US-009507513-1308USA001901

PATIENT
  Sex: Male

DRUGS (1)
  1. COPPERTONE SPORT LOTION SPF 30 [Suspect]
     Indication: PRODUCT USED FOR UNKNOWN INDICATION
     Dosage: UNK, UNKNOWN
     Route: 061
     Dates: start: 20130718

REACTIONS (1)
  - Sunburn [Unknown]
